FAERS Safety Report 4899071-8 (Version None)
Quarter: 2006Q1

REPORT INFORMATION
  Report Type: 
  Country: None (occurrence: None)
  Receive Date: 20060130
  Receipt Date: 20060117
  Transmission Date: 20060701
  Serious: Yes (Hospitalization)
  Sender: FDA-Public Use
  Company Number: HQWYE452123JAN06

PATIENT
  Age: 63 Year
  Sex: Male

DRUGS (3)
  1. GRISEOFULVIN [Suspect]
     Indication: TINEA CAPITIS
     Dosage: 20 MG/KG DAILY, ORAL
     Route: 048
  2. PENICILLIN [Concomitant]
  3. METICILLIN (METICILLIN) [Concomitant]

REACTIONS (2)
  - DERMATITIS EXFOLIATIVE [None]
  - ICHTHYOSIS [None]
